FAERS Safety Report 8585336-5 (Version None)
Quarter: 2012Q3

REPORT INFORMATION
  Report Type: 
  Country: None (occurrence: None)
  Receive Date: 20120810
  Receipt Date: 20120803
  Transmission Date: 20120928
  Serious: Yes (Hospitalization)
  Sender: FDA-Public Use
  Company Number: FR-SANOFI-AVENTIS-2012SA055576

PATIENT
  Age: 41 Year
  Sex: Female

DRUGS (6)
  1. ACETAMINOPHEN [Concomitant]
     Dates: start: 20120403
  2. LOVENOX [Suspect]
     Dosage: ROUTE PARENTERAL
     Route: 065
     Dates: start: 20120412
  3. FLUCONAZOLE [Suspect]
     Indication: INFECTION
     Route: 065
     Dates: start: 20120402, end: 20120421
  4. TAZOBACTAM [Suspect]
     Indication: INFECTION
     Route: 065
     Dates: start: 20120402, end: 20120421
  5. NEXIUM [Concomitant]
     Dates: start: 20120403
  6. TRAMADOL HCL [Concomitant]
     Dates: start: 20120403

REACTIONS (1)
  - PANCYTOPENIA [None]
